FAERS Safety Report 12737098 (Version 1)
Quarter: 2016Q3

REPORT INFORMATION
  Report Type: Spontaneous
  Country: FR (occurrence: FR)
  Receive Date: 20160912
  Receipt Date: 20160912
  Transmission Date: 20161109
  Serious: Yes (Hospitalization)
  Sender: FDA-Public Use
  Company Number: FR-SA-2016SA166104

PATIENT
  Age: 69 Year
  Sex: Female

DRUGS (16)
  1. AMBROXOL [Suspect]
     Active Substance: AMBROXOL
     Indication: BRONCHIAL DISORDER
     Route: 048
     Dates: start: 20160611, end: 20160614
  2. LASILIX [Suspect]
     Active Substance: FUROSEMIDE
     Indication: CARDIAC FAILURE
     Route: 048
     Dates: start: 20160510, end: 20160626
  3. DIFFU K [Suspect]
     Active Substance: POTASSIUM CHLORIDE
     Indication: HYPOKALAEMIA
     Dosage: DOSE AND FREQUENCY: (600 MG,6 DAY (S))
     Route: 048
     Dates: start: 20160611, end: 20160622
  4. VANCOMYCIN [Suspect]
     Active Substance: VANCOMYCIN
     Indication: STERNITIS
     Route: 042
     Dates: start: 20160601, end: 20160620
  5. TIORFAN [Suspect]
     Active Substance: RACECADOTRIL
     Indication: DIARRHOEA
     Route: 048
     Dates: start: 20160625, end: 20160708
  6. DALACINE [Suspect]
     Active Substance: CLINDAMYCIN HYDROCHLORIDE
     Indication: STERNITIS
     Dosage: (300 MG,6 DAY (S))
     Route: 048
     Dates: start: 20160620, end: 20160628
  7. TAZOBACTAM/PIPERACILLIN [Suspect]
     Active Substance: PIPERACILLIN SODIUM\TAZOBACTAM SODIUM
     Indication: STERNITIS
     Route: 042
     Dates: start: 20160601, end: 20160620
  8. AMLOR [Suspect]
     Active Substance: AMLODIPINE BESYLATE
     Route: 048
     Dates: start: 20160625, end: 20160708
  9. CORDARONE [Suspect]
     Active Substance: AMIODARONE HYDROCHLORIDE
     Indication: ATRIAL FIBRILLATION
     Route: 048
     Dates: start: 20160602, end: 20160701
  10. KARDEGIC [Suspect]
     Active Substance: ASPIRIN LYSINE
     Route: 048
     Dates: start: 20160602, end: 20160809
  11. RIMACTAN [Suspect]
     Active Substance: RIFAMPIN
     Indication: STERNITIS
     Route: 048
     Dates: start: 20160620, end: 20160628
  12. GAVISCON [Suspect]
     Active Substance: ALUMINUM HYDROXIDE\MAGNESIUM CARBONATE
     Route: 048
     Dates: start: 20160615, end: 20160623
  13. CALCIPARINE [Suspect]
     Active Substance: HEPARIN CALCIUM
     Indication: THROMBOSIS PROPHYLAXIS
     Route: 058
     Dates: start: 20160626, end: 20160628
  14. DOLIPRANEORO [Suspect]
     Active Substance: ACETAMINOPHEN
     Route: 048
     Dates: start: 20160615, end: 20160622
  15. FUMAFER [Suspect]
     Active Substance: FERROUS FUMARATE
     Indication: ANAEMIA
     Route: 048
     Dates: start: 20160602, end: 20160708
  16. LOVENOX [Suspect]
     Active Substance: ENOXAPARIN SODIUM
     Indication: THROMBOSIS PROPHYLAXIS
     Route: 058
     Dates: start: 20160509, end: 20160625

REACTIONS (8)
  - Hypokalaemia [None]
  - Bronchial disorder [None]
  - Diarrhoea [None]
  - Anaemia [None]
  - Tubulointerstitial nephritis [None]
  - Drug reaction with eosinophilia and systemic symptoms [Recovered/Resolved with Sequelae]
  - Acute kidney injury [None]
  - Nephropathy toxic [None]

NARRATIVE: CASE EVENT DATE: 20160627
